FAERS Safety Report 8911115 (Version 1)
Quarter: 2012Q4

REPORT INFORMATION
  Report Type: 
  Country: US (occurrence: US)
  Receive Date: 20121116
  Receipt Date: 20121116
  Transmission Date: 20130627
  Serious: No
  Sender: FDA-Public Use
  Company Number: US-GLAXOSMITHKLINE-A0914880A

PATIENT
  Age: 65 Year
  Sex: Male

DRUGS (3)
  1. VOTRIENT [Suspect]
     Indication: RENAL CELL CARCINOMA
     Dosage: 4TAB Per day
     Route: 048
     Dates: start: 20100904
  2. LIPITOR [Concomitant]
  3. BLOOD PRESSURE MEDICATION [Concomitant]
     Indication: HYPERTENSION

REACTIONS (6)
  - Blood pressure increased [Unknown]
  - Hair disorder [Unknown]
  - Skin discolouration [Unknown]
  - Adverse event [Unknown]
  - Eating disorder [Unknown]
  - Diarrhoea [Not Recovered/Not Resolved]
